FAERS Safety Report 8353967-3 (Version None)
Quarter: 2012Q2

REPORT INFORMATION
  Report Type: 
  Country: None (occurrence: None)
  Receive Date: 20120509
  Receipt Date: 20120427
  Transmission Date: 20120825
  Serious: Yes (Hospitalization)
  Sender: FDA-Public Use
  Company Number: WAES 1204USA04424

PATIENT
  Age: 65 Year
  Sex: Female
  Weight: 60.3284 kg

DRUGS (9)
  1. ZOLINZA [Suspect]
     Indication: BREAST CANCER
     Dosage: 400 MG/DAILY/PO
     Route: 048
     Dates: start: 20120316, end: 20120320
  2. LEVOTHYROXINE SODIUM [Concomitant]
  3. PROZAC [Concomitant]
  4. AMBIEN [Concomitant]
  5. ATIVAN [Concomitant]
  6. ZOFRAN [Concomitant]
  7. PROTONIX [Concomitant]
  8. ARIMIDEX [Concomitant]
  9. COMPAZINE [Concomitant]

REACTIONS (7)
  - LIPASE INCREASED [None]
  - HAEMOGLOBIN DECREASED [None]
  - ABDOMINAL PAIN [None]
  - DEHYDRATION [None]
  - VOMITING [None]
  - GALLBLADDER DISORDER [None]
  - DIARRHOEA [None]
